FAERS Safety Report 6643965-X (Version None)
Quarter: 2010Q1

REPORT INFORMATION
  Report Type: 
  Country: None (occurrence: None)
  Receive Date: 20100322
  Receipt Date: 20100316
  Transmission Date: 20100710
  Serious: Yes (Hospitalization)
  Sender: FDA-Public Use
  Company Number: FR-BRISTOL-MYERS SQUIBB COMPANY-14691406

PATIENT
  Age: 64 Year
  Sex: Male

DRUGS (10)
  1. IRBESARTAN [Suspect]
     Route: 048
     Dates: start: 20080601, end: 20090218
  2. GLUCOPHAGE [Suspect]
  3. PARACETAMOL [Suspect]
     Dates: start: 20090210
  4. TRIATEC [Suspect]
     Route: 048
     Dates: start: 20080610, end: 20090218
  5. BI-PROFENID [Suspect]
     Dates: start: 20090210, end: 20090218
  6. ISOPTIN [Concomitant]
  7. TAHOR [Concomitant]
  8. ESIDRIX [Concomitant]
  9. PANTOPRAZOLE [Concomitant]
     Dates: start: 20090210
  10. ACETAMINOPHEN W/ PROPOXYPHENE HCL [Concomitant]
     Dates: start: 20090210

REACTIONS (4)
  - HYPERLACTACIDAEMIA [None]
  - METABOLIC ACIDOSIS [None]
  - RENAL FAILURE ACUTE [None]
  - RESPIRATORY DISTRESS [None]
